FAERS Safety Report 6303739-6 (Version None)
Quarter: 2009Q3

REPORT INFORMATION
  Report Type: 
  Country: None (occurrence: None)
  Receive Date: 20090807
  Receipt Date: 20090807
  Transmission Date: 20100115
  Serious: Yes (Other)
  Sender: FDA-Public Use
  Company Number: None

PATIENT
  Age: 43 Year
  Sex: Male
  Weight: 66.2252 kg

DRUGS (1)
  1. CIPROFLOXACIN [Suspect]
     Indication: BACTERIA BODY FLUID IDENTIFIED
     Dosage: 500 MG 2X A DAY PO
     Route: 048
     Dates: start: 20090801, end: 20090805

REACTIONS (2)
  - ARTHRALGIA [None]
  - PAIN IN EXTREMITY [None]
